FAERS Safety Report 9564881 (Version 2)
Quarter: 2013Q3

REPORT INFORMATION
  Report Type: Report from Study
  Country: TR (occurrence: TR)
  Receive Date: 20130930
  Receipt Date: 20130930
  Transmission Date: 20140515
  Serious: Yes (Hospitalization)
  Sender: FDA-Public Use
  Company Number: TR-US-EMD SERONO, INC.-7229210

PATIENT
  Sex: Female
  Weight: 41 kg

DRUGS (3)
  1. SAIZEN [Suspect]
     Indication: GROWTH HORMONE DEFICIENCY
     Route: 058
     Dates: start: 20120424, end: 20130806
  2. SAIZEN [Suspect]
     Dates: start: 20130808
  3. ATOR [Suspect]
     Indication: HYPERLIPIDAEMIA
     Route: 048
     Dates: start: 20120721

REACTIONS (1)
  - Spinal deformity [Recovering/Resolving]
